FAERS Safety Report 7094083-0 (Version None)
Quarter: 2010Q4

REPORT INFORMATION
  Report Type: 
  Country: None (occurrence: None)
  Receive Date: 20101110
  Receipt Date: 20101102
  Transmission Date: 20110411
  Serious: Yes (Other)
  Sender: FDA-Public Use
  Company Number: JP-PFIZER INC-2010131283

PATIENT
  Age: 80 Year
  Sex: Female
  Weight: 46 kg

DRUGS (3)
  1. LYRICA [Suspect]
     Indication: SCIATICA
     Dosage: 75 MG, 2X/DAY
     Route: 048
     Dates: start: 20101014, end: 20101015
  2. DIGOXIN [Concomitant]
     Indication: CARDIAC FAILURE
     Dosage: 0.125 MG, 1X/DAY
     Route: 048
     Dates: start: 20101004
  3. ALFAROL [Concomitant]
     Indication: OSTEOPOROSIS
     Dosage: 0.5 MG, 1X/DAY
     Route: 048
     Dates: start: 20101004

REACTIONS (5)
  - ANXIETY [None]
  - BLOOD PRESSURE INCREASED [None]
  - PUPILLARY DISORDER [None]
  - SOMNOLENCE [None]
  - THIRST [None]
